FAERS Safety Report 6403273-9 (Version None)
Quarter: 2009Q4

REPORT INFORMATION
  Report Type: 
  Country: None (occurrence: None)
  Receive Date: 20091016
  Receipt Date: 20091008
  Transmission Date: 20100525
  Serious: Yes (Hospitalization, Other)
  Sender: FDA-Public Use
  Company Number: US-JNJFOC-20091004324

PATIENT
  Sex: Male
  Weight: 68.04 kg

DRUGS (12)
  1. IMODIUM A-D [Suspect]
     Route: 048
     Dates: start: 20080729
  2. IMODIUM A-D [Suspect]
     Indication: DIARRHOEA
     Route: 048
     Dates: start: 20080729
  3. IRINOTECAN HYDROCHLORIDE [Suspect]
     Indication: COLORECTAL CANCER METASTATIC
     Dosage: CYCLIC EVERY 15 DAYS
     Route: 065
     Dates: start: 20080729, end: 20081202
  4. FLUOROURACIL [Suspect]
     Indication: COLORECTAL CANCER METASTATIC
     Dosage: CYCLIC EVERY 15 DAYS
     Route: 065
     Dates: start: 20080729, end: 20081202
  5. AMLODIPINE BESYLATE [Suspect]
     Indication: HYPERTENSION
     Route: 048
  6. FOLINIC ACID [Suspect]
     Indication: DRUG USE FOR UNKNOWN INDICATION
     Route: 065
     Dates: start: 20081202
  7. AVASTIN [Suspect]
     Indication: COLORECTAL CANCER
     Route: 065
     Dates: start: 20080729, end: 20081202
  8. DAONIL [Suspect]
     Indication: TYPE 2 DIABETES MELLITUS
     Route: 048
  9. CELECTOL [Suspect]
     Indication: HYPERTENSION
     Route: 048
  10. MEDIATOR [Suspect]
     Indication: TYPE 2 DIABETES MELLITUS
     Route: 048
  11. NEXIUM [Suspect]
     Indication: GASTROOESOPHAGEAL REFLUX DISEASE
     Route: 048
     Dates: start: 20081118
  12. AMAREL [Suspect]
     Indication: TYPE 2 DIABETES MELLITUS
     Route: 048

REACTIONS (4)
  - DIARRHOEA [None]
  - MEDICATION ERROR [None]
  - SUBILEUS [None]
  - WEIGHT DECREASED [None]
